FAERS Safety Report 7091496-8 (Version None)
Quarter: 2010Q4

REPORT INFORMATION
  Report Type: 
  Country: None (occurrence: None)
  Receive Date: 20101109
  Receipt Date: 20101104
  Transmission Date: 20110411
  Serious: Yes (Hospitalization, Other)
  Sender: FDA-Public Use
  Company Number: US-PFIZER INC-2010140601

PATIENT
  Sex: Male
  Weight: 104.31 kg

DRUGS (8)
  1. CELEBREX [Suspect]
     Indication: OSTEOPOROSIS
     Dosage: 200 MG, 2X/DAY
     Route: 048
     Dates: start: 20090101, end: 20101103
  2. TAMSULOSIN HYDROCHLORIDE [Concomitant]
     Indication: URINARY INCONTINENCE
     Dosage: 0.4 MG, 1X/DAY
     Route: 048
  3. KLOR-CON [Concomitant]
     Dosage: 20 MG, UNK
     Route: 048
  4. FLUOXETINE HYDROCHLORIDE [Concomitant]
     Indication: HYPERSENSITIVITY
     Dosage: 180 MG, 1X/DAY
     Route: 048
  5. LOTREL [Concomitant]
     Dosage: 10/40 MG
     Route: 048
  6. NASONEX [Concomitant]
     Indication: NASAL CONGESTION
     Dosage: 50 UG, AS NEEDED
     Route: 045
  7. PANTOPRAZOLE [Concomitant]
     Indication: GASTROOESOPHAGEAL REFLUX DISEASE
     Dosage: 40 MG, 2X/DAY
     Route: 048
  8. PERCOCET [Suspect]
     Indication: SCOLIOSIS

REACTIONS (12)
  - CARDIOVASCULAR DISORDER [None]
  - DYSPNOEA [None]
  - ERYTHEMA [None]
  - EYE DISORDER [None]
  - HYPERHIDROSIS [None]
  - KNEE ARTHROPLASTY [None]
  - NASAL CONGESTION [None]
  - OEDEMA PERIPHERAL [None]
  - PARAESTHESIA [None]
  - RASH [None]
  - RECTAL DISCHARGE [None]
  - WEIGHT INCREASED [None]
